FAERS Safety Report 14697059 (Version 1)
Quarter: 2018Q1

REPORT INFORMATION
  Report Type: Spontaneous
  Country: US (occurrence: US)
  Receive Date: 20180330
  Receipt Date: 20180330
  Transmission Date: 20180509
  Serious: No
  Sender: FDA-Public Use
  Company Number: US-SA-2017SA100439

PATIENT
  Sex: Male

DRUGS (4)
  1. BENADRYL [Concomitant]
     Active Substance: DIPHENHYDRAMINE HYDROCHLORIDE
     Indication: LACRIMATION INCREASED
     Route: 065
  2. ALLEGRA ALLERGY [Suspect]
     Active Substance: FEXOFENADINE HYDROCHLORIDE
     Indication: RASH
     Route: 065
  3. ALLEGRA ALLERGY [Suspect]
     Active Substance: FEXOFENADINE HYDROCHLORIDE
     Indication: LACRIMATION INCREASED
     Route: 065
  4. BENADRYL [Concomitant]
     Active Substance: DIPHENHYDRAMINE HYDROCHLORIDE
     Indication: RASH
     Route: 065

REACTIONS (5)
  - Oropharyngeal pain [Unknown]
  - Dysgeusia [Unknown]
  - Headache [Unknown]
  - Vomiting [Unknown]
  - Dry throat [Unknown]
